FAERS Safety Report 12971101 (Version 2)
Quarter: 2016Q4

REPORT INFORMATION
  Report Type: Spontaneous
  Country: US (occurrence: US)
  Receive Date: 20161123
  Receipt Date: 20161128
  Transmission Date: 20170207
  Serious: No
  Sender: FDA-Public Use
  Company Number: US-JAZZ-2016-US-019101

PATIENT
  Sex: Female

DRUGS (26)
  1. XYREM [Suspect]
     Active Substance: SODIUM OXYBATE
     Indication: NARCOLEPSY
     Dosage: 3 G, BID
     Route: 048
     Dates: start: 201307, end: 201311
  2. MULTIVITAMIN                       /00097801/ [Concomitant]
     Active Substance: VITAMINS
  3. PROBIOTIC                          /06395501/ [Concomitant]
     Active Substance: BIFIDOBACTERIUM ANIMALIS SUBSP. LACTIS
  4. VITAMIN E ACETATE                 /00110501/ [Concomitant]
  5. NUVIGIL [Concomitant]
     Active Substance: ARMODAFINIL
  6. CALCIUM + MAGNESIUM + ZINK [Concomitant]
  7. ZINC ACETATE [Concomitant]
     Active Substance: ZINC ACETATE
  8. ADDERALL [Concomitant]
     Active Substance: AMPHETAMINE ASPARTATE\AMPHETAMINE SULFATE\DEXTROAMPHETAMINE SACCHARATE\DEXTROAMPHETAMINE SULFATE
  9. COD LIVER OIL [Concomitant]
     Active Substance: COD LIVER OIL
  10. ALPHA LIPOIC ACID [Concomitant]
     Active Substance: .ALPHA.-LIPOIC ACID
  11. VITAMIN A                          /00056001/ [Concomitant]
     Active Substance: RETINOL
  12. MALIC ACID [Concomitant]
     Active Substance: MALIC ACID
  13. OMEPRAZOLE DR [Concomitant]
     Active Substance: OMEPRAZOLE
  14. SOMA [Concomitant]
     Active Substance: CARISOPRODOL
  15. MILK THISTLE                       /01131701/ [Concomitant]
  16. NAC                                /00082801/ [Concomitant]
  17. XYREM [Suspect]
     Active Substance: SODIUM OXYBATE
     Indication: CATAPLEXY
     Dosage: DOSE ADJUSTMENTS
     Route: 048
     Dates: start: 201311, end: 201605
  18. XYREM [Suspect]
     Active Substance: SODIUM OXYBATE
     Dosage: 3 G, BID
     Route: 048
     Dates: start: 201605
  19. SAVELLA [Concomitant]
     Active Substance: MILNACIPRAN HYDROCHLORIDE
  20. VITAMIN D3 [Concomitant]
     Active Substance: CHOLECALCIFEROL
  21. VITAMIN C TR                       /00008001/ [Concomitant]
  22. HYDROCODONE BITARTRATE AND ACETAMINOPHEN [Concomitant]
     Active Substance: ACETAMINOPHEN\HYDROCODONE BITARTRATE
  23. SELENIUM DR [Concomitant]
  24. RITALIN [Concomitant]
     Active Substance: METHYLPHENIDATE HYDROCHLORIDE
  25. MANGANESE CHLORIDE [Concomitant]
     Active Substance: MANGANESE CHLORIDE
  26. OMEGA 3 FISH OIL                   /01334101/ [Concomitant]
     Active Substance: FISH OIL

REACTIONS (1)
  - Cognitive disorder [Unknown]
